FAERS Safety Report 9942831 (Version 1)
Quarter: 2014Q1

REPORT INFORMATION
  Report Type: Report from Study
  Country: US (occurrence: US)
  Receive Date: 20140303
  Receipt Date: 20140303
  Transmission Date: 20141002
  Serious: No
  Sender: FDA-Public Use
  Company Number: US-ABBVIE-13P-163-1044528-00

PATIENT
  Age: 18 Year
  Sex: Female

DRUGS (8)
  1. HUMIRA [Suspect]
     Indication: ARTHRITIS REACTIVE
     Dates: start: 20130130
  2. METHOTREXATE [Concomitant]
     Indication: ARTHRITIS REACTIVE
  3. METHOTREXATE [Concomitant]
     Indication: CONNECTIVE TISSUE DISORDER
  4. PLAQUENIL [Concomitant]
     Indication: ARTHRITIS REACTIVE
  5. PLAQUENIL [Concomitant]
     Indication: CONNECTIVE TISSUE DISORDER
  6. PERCOCET [Concomitant]
     Indication: PRODUCT USED FOR UNKNOWN INDICATION
  7. AMBIEN [Concomitant]
     Indication: PRODUCT USED FOR UNKNOWN INDICATION
  8. UNKNOWN BIRTH CONTROL PILLS [Concomitant]
     Indication: PRODUCT USED FOR UNKNOWN INDICATION

REACTIONS (6)
  - Dysarthria [Recovering/Resolving]
  - Hypoaesthesia [Recovering/Resolving]
  - Pain [Not Recovered/Not Resolved]
  - Headache [Recovering/Resolving]
  - Asthenia [Recovering/Resolving]
  - Paraesthesia [Recovering/Resolving]
